FAERS Safety Report 4766138-4 (Version None)
Quarter: 2005Q3

REPORT INFORMATION
  Report Type: 
  Country: None (occurrence: None)
  Receive Date: 20050912
  Receipt Date: 20050324
  Transmission Date: 20060218
  Serious: Yes (Hospitalization, Disabling)
  Sender: FDA-Public Use
  Company Number: US-MERCK-0503USA04602

PATIENT
  Age: 60 Year
  Sex: Male
  Weight: 98 kg

DRUGS (22)
  1. VIOXX [Suspect]
     Indication: OSTEOARTHRITIS
     Route: 048
     Dates: start: 20010101, end: 20041001
  2. WELLBUTRIN [Concomitant]
     Route: 065
  3. LASIX [Concomitant]
     Route: 065
     Dates: start: 19900101
  4. LASIX [Concomitant]
     Route: 065
     Dates: start: 19900101
  5. NORMODYNE [Concomitant]
     Route: 065
     Dates: start: 19900101
  6. ALDACTONE [Concomitant]
     Route: 065
     Dates: start: 19981201, end: 20050101
  7. SPIRONOLACTONE [Concomitant]
     Route: 065
  8. NORVASC [Concomitant]
     Route: 065
     Dates: start: 19980101, end: 20041201
  9. GLUCOPHAGE [Concomitant]
     Route: 065
  10. GLUCOTROL [Concomitant]
     Route: 065
  11. LANTUS [Concomitant]
     Route: 065
  12. [THERAPY UNSPECIFIED] [Concomitant]
     Route: 065
  13. ACTOS [Concomitant]
     Route: 065
  14. METFORMIN [Concomitant]
     Route: 065
  15. INSULIN [Concomitant]
     Route: 065
  16. ALBUTEROL [Concomitant]
     Route: 065
  17. BRETHINE [Concomitant]
     Route: 065
  18. COMBIVENT [Concomitant]
     Route: 065
  19. TYLENOL [Concomitant]
     Route: 065
  20. K-DUR 10 [Concomitant]
     Route: 065
  21. DIGOXIN [Concomitant]
     Route: 065
  22. COUMADIN [Concomitant]
     Route: 065

REACTIONS (8)
  - ATRIAL FIBRILLATION [None]
  - BLOOD CHOLESTEROL INCREASED [None]
  - CEREBROVASCULAR ACCIDENT [None]
  - HAEMORRHAGIC STROKE [None]
  - HYPERSENSITIVITY [None]
  - HYPERTENSION [None]
  - HYPERTENSIVE HEART DISEASE [None]
  - OESOPHAGEAL DISORDER [None]
